FAERS Safety Report 17635632 (Version 1)
Quarter: 2020Q2

REPORT INFORMATION
  Report Type: Spontaneous
  Country: FR (occurrence: FR)
  Receive Date: 20200406
  Receipt Date: 20200406
  Transmission Date: 20200713
  Serious: Yes (Other)
  Sender: FDA-Public Use
  Company Number: FR-TEVA-2020-FR-1218633

PATIENT
  Age: 17 Year
  Sex: Male
  Weight: 49 kg

DRUGS (4)
  1. DOXORUBICINE TEVA [Suspect]
     Active Substance: DOXORUBICIN
     Indication: ACUTE LEUKAEMIA
     Dosage: 40 MG
     Route: 041
     Dates: start: 20180515, end: 20180522
  2. ONCASPAR [Suspect]
     Active Substance: PEGASPARGASE
     Indication: ACUTE LEUKAEMIA
     Dosage: 4050 IU
     Route: 041
     Dates: start: 20180518
  3. SULFATE DE VINCRISTINE [Concomitant]
     Active Substance: VINCRISTINE SULFATE
  4. ENDOXAN [Suspect]
     Active Substance: CYCLOPHOSPHAMIDE
     Indication: ACUTE LEUKAEMIA
     Dosage: 1640 MG
     Route: 041
     Dates: start: 20180615

REACTIONS (1)
  - Lipase increased [Recovered/Resolved]

NARRATIVE: CASE EVENT DATE: 20180629
